FAERS Safety Report 13023641 (Version 1)
Quarter: 2016Q4

REPORT INFORMATION
  Report Type: Spontaneous
  Country: US (occurrence: US)
  Receive Date: 20161213
  Receipt Date: 20161213
  Transmission Date: 20170207
  Serious: Yes (Other)
  Sender: FDA-Public Use
  Company Number: None

PATIENT
  Sex: Male
  Weight: 24 kg

DRUGS (2)
  1. AVEENO BABY SOOTHING RELIEF CREAMY WASH [Suspect]
     Active Substance: COSMETICS
     Route: 061
     Dates: start: 20161121
  2. AVEENO ULTRA-CALMING DAILY MOISTURIZER SPF15 [Suspect]
     Active Substance: AVOBENZONE\OCTINOXATE\OCTISALATE
     Indication: DRY SKIN
     Route: 061
     Dates: start: 20161122, end: 20161122

REACTIONS (2)
  - Anaphylactic shock [None]
  - Product label issue [None]

NARRATIVE: CASE EVENT DATE: 20161122
